FAERS Safety Report 19092355 (Version 1)
Quarter: 2021Q2

REPORT INFORMATION
  Report Type: Spontaneous
  Country: US (occurrence: US)
  Receive Date: 20210405
  Receipt Date: 20210405
  Transmission Date: 20210717
  Serious: No
  Sender: FDA-Public Use
  Company Number: US-PFIZER INC-2021344766

PATIENT
  Age: 56 Year
  Sex: Female

DRUGS (3)
  1. LYRICA [Suspect]
     Active Substance: PREGABALIN
     Indication: MUSCLE SPASMS
  2. LYRICA [Suspect]
     Active Substance: PREGABALIN
     Indication: SPINAL STENOSIS
     Dosage: 150 MG, 2X/DAY
  3. LYRICA [Suspect]
     Active Substance: PREGABALIN
     Indication: NERVE COMPRESSION

REACTIONS (3)
  - Vision blurred [Unknown]
  - Feeling abnormal [Unknown]
  - Muscle twitching [Unknown]
